FAERS Safety Report 5577221-8 (Version None)
Quarter: 2007Q4

REPORT INFORMATION
  Report Type: 
  Country: None (occurrence: None)
  Receive Date: 20071228
  Receipt Date: 20071220
  Transmission Date: 20080405
  Serious: Yes (Other)
  Sender: FDA-Public Use
  Company Number: US-GENENTECH-253429

PATIENT

DRUGS (1)
  1. SOMATROPIN [Suspect]
     Indication: GROWTH RETARDATION
     Dosage: 1.2 MG, QD

REACTIONS (1)
  - LYMPHOPROLIFERATIVE DISORDER [None]
